FAERS Safety Report 8400617 (Version 5)
Quarter: 2013Q3

REPORT INFORMATION
  Report Type: Spontaneous
  Country: JP (occurrence: JP)
  Receive Date: 20120210
  Receipt Date: 20130827
  Transmission Date: 20140515
  Serious: Yes (Death, Hospitalization)
  Sender: FDA-Public Use
  Company Number: JP-ELI_LILLY_AND_COMPANY-JP201111006474

PATIENT
  Age: 65 Year
  Sex: Male
  Weight: 82.5 kg

DRUGS (10)
  1. ALIMTA [Suspect]
     Indication: NON-SMALL CELL LUNG CANCER
     Dosage: 500 MG/M2, UNK
     Route: 042
     Dates: start: 20111019, end: 20111019
  2. PANVITAN [Concomitant]
     Dosage: 1 G, QD
     Route: 048
     Dates: start: 20110928, end: 20111117
  3. FRESMIN S [Concomitant]
     Dosage: 1 MG, UNK
     Route: 030
     Dates: start: 20110928
  4. GOSHAJINKIGAN [Concomitant]
     Dosage: 2.5 G, TID
     Route: 048
     Dates: start: 20110415
  5. MEDICON [Concomitant]
     Dosage: 02 MG, TID
     Route: 048
     Dates: start: 20110706
  6. MYSLEE [Concomitant]
     Dosage: 10 MG, QD
     Route: 048
     Dates: start: 20110426
  7. CANDESARTAN CILEXETIL W/HYDROCHLOROTHIAZIDE [Concomitant]
     Dosage: 1 DF, QD
     Route: 048
     Dates: start: 20110803
  8. LOXONIN [Concomitant]
     Dosage: 60 MG, TID
     Route: 048
     Dates: start: 20110608
  9. MUCOSTA [Concomitant]
     Dosage: 100 MG, TID
     Route: 048
     Dates: start: 20110803
  10. AMLODIN [Concomitant]
     Dosage: 5 MG, QD
     Route: 048

REACTIONS (4)
  - Interstitial lung disease [Fatal]
  - Pneumonia aspiration [Not Recovered/Not Resolved]
  - Malnutrition [Not Recovered/Not Resolved]
  - Rash [Recovered/Resolved]
